FAERS Safety Report 22123787 (Version 2)
Quarter: 2023Q2

REPORT INFORMATION
  Report Type: Report from Study
  Country: US (occurrence: US)
  Receive Date: 20230322
  Receipt Date: 20230406
  Transmission Date: 20230722
  Serious: Yes (Hospitalization, Other)
  Sender: FDA-Public Use
  Company Number: US-002147023-NVSC2023US060070

PATIENT
  Age: 54 Year
  Sex: Male

DRUGS (4)
  1. ENTRESTO [Suspect]
     Active Substance: SACUBITRIL\VALSARTAN
     Indication: Myocardial infarction
     Dosage: 0.5 DOSAGE FORM, BID (0.5 TABLET IN THE MORNING AND 0.5 TABLET AT NIGHT) (FOR ABOUT 10 YEARS)
     Route: 065
  2. ENTRESTO [Suspect]
     Active Substance: SACUBITRIL\VALSARTAN
     Dosage: 1 DOSAGE FORM, BID (1 TABLET IN THE MORNING AND 1 TABLET IN THE EVENING) (FOR 5 WEEKS)
     Route: 065
  3. ENTRESTO [Suspect]
     Active Substance: SACUBITRIL\VALSARTAN
     Dosage: 0.5 DOSAGE FORM, BID (0.5 TABLET IN THE MORNING AND 0.5 TABLET AT NIGHT)
     Route: 065
  4. ENTRESTO [Suspect]
     Active Substance: SACUBITRIL\VALSARTAN
     Dosage: 1 DOSAGE FORM, QD (24/26 MG)
     Route: 048

REACTIONS (16)
  - Myocardial infarction [Unknown]
  - Hip fracture [Unknown]
  - Cardiac disorder [Unknown]
  - Nerve injury [Unknown]
  - Peroneal nerve palsy [Unknown]
  - Spinal column injury [Unknown]
  - Limb injury [Unknown]
  - Neck injury [Unknown]
  - Tinnitus [Unknown]
  - Decreased activity [Unknown]
  - Hypersomnia [Unknown]
  - Fatigue [Unknown]
  - Wrong technique in product usage process [Unknown]
  - Product use in unapproved indication [Unknown]
  - Product use issue [Unknown]
  - Prescribed underdose [Unknown]

NARRATIVE: CASE EVENT DATE: 20210401
